FAERS Safety Report 10907157 (Version 1)
Quarter: 2015Q1

REPORT INFORMATION
  Report Type: Spontaneous
  Country: US (occurrence: None)
  Receive Date: 20150309
  Receipt Date: 20150309
  Transmission Date: 20150721
  Serious: Yes (Life-Threatening, Hospitalization, Disabling)
  Sender: FDA-Public Use
  Company Number: None

PATIENT
  Age: 59 Year
  Sex: Female
  Weight: 56 kg

DRUGS (4)
  1. METHOTREXATE [Concomitant]
     Active Substance: METHOTREXATE
  2. HYDROXYUREA. [Concomitant]
     Active Substance: HYDROXYUREA
  3. TOCILIZUMAB [Suspect]
     Active Substance: TOCILIZUMAB
     Indication: RHEUMATOID ARTHRITIS
     Route: 042
  4. TOCILIZUMAB [Concomitant]
     Active Substance: TOCILIZUMAB

REACTIONS (8)
  - Intracranial aneurysm [None]
  - Cardiac valve vegetation [None]
  - Infective aneurysm [None]
  - Endocarditis [None]
  - Osteomyelitis [None]
  - Bacteraemia [None]
  - Endocarditis bacterial [None]
  - Cerebrovascular accident [None]

NARRATIVE: CASE EVENT DATE: 20150217
